FAERS Safety Report 6390812-X (Version None)
Quarter: 2009Q4

REPORT INFORMATION
  Report Type: 
  Country: None (occurrence: None)
  Receive Date: 20091001
  Receipt Date: 20090817
  Transmission Date: 20100525
  Serious: No
  Sender: FDA-Public Use
  Company Number: 1000008248

PATIENT
  Age: 46 Year
  Sex: Female

DRUGS (3)
  1. BYSTOLIC [Suspect]
     Dosage: 20 MG (10 MG, 2 IN 1 D), ORAL
     Route: 048
     Dates: start: 20090301, end: 20090726
  2. BYSTOLIC [Suspect]
     Dosage: 20 MG (10 MG, 2 IN 1 D), ORAL
     Route: 048
     Dates: start: 20090727, end: 20090731
  3. BYSTOLIC [Suspect]
     Dosage: 20 MG (10 MG, 2 IN 1 D), ORAL
     Route: 048
     Dates: start: 20090801

REACTIONS (1)
  - ABDOMINAL DISCOMFORT [None]
